FAERS Safety Report 18423762 (Version 2)
Quarter: 2020Q4

REPORT INFORMATION
  Report Type: Report from Study
  Country: AR (occurrence: AR)
  Receive Date: 20201024
  Receipt Date: 20201101
  Transmission Date: 20210114
  Serious: Yes (Death, Hospitalization)
  Sender: FDA-Public Use
  Company Number: NVSC2020AR286565

PATIENT
  Age: 75 Year
  Sex: Female

DRUGS (1)
  1. ENTRESTO [Suspect]
     Active Substance: SACUBITRIL\VALSARTAN
     Indication: CARDIAC DISORDER
     Dosage: UNK
     Route: 065

REACTIONS (7)
  - Cardio-respiratory arrest [Fatal]
  - Headache [Unknown]
  - Peripheral swelling [Unknown]
  - Swelling [Unknown]
  - Product use in unapproved indication [Unknown]
  - Agitation [Unknown]
  - Suspected COVID-19 [Unknown]

NARRATIVE: CASE EVENT DATE: 202009
